FAERS Safety Report 11599191 (Version 1)
Quarter: 2015Q4

REPORT INFORMATION
  Report Type: Report from Study
  Country: DK (occurrence: DK)
  Receive Date: 20151006
  Receipt Date: 20151006
  Transmission Date: 20160304
  Serious: Yes (Death)
  Sender: FDA-Public Use
  Company Number: DK-ASTRAZENECA-2015SE95229

PATIENT
  Age: 57 Year
  Sex: Female
  Weight: 78 kg

DRUGS (6)
  1. OXAZEPAM. [Concomitant]
     Active Substance: OXAZEPAM
  2. CHLORPROTHIXENE [Concomitant]
     Active Substance: CHLORPROTHIXENE
  3. PARACETAMOL [Concomitant]
     Active Substance: ACETAMINOPHEN
  4. 4-AMINO-3-HYDROXYBUTYRIC ACID [Concomitant]
     Active Substance: 4-HYDROXYBUTANOIC ACID
  5. QUETIAPINE FUMARATE. [Suspect]
     Active Substance: QUETIAPINE FUMARATE
     Route: 048
  6. ALCOHOL. [Concomitant]
     Active Substance: ALCOHOL

REACTIONS (1)
  - Toxicity to various agents [Fatal]
